FAERS Safety Report 8552786-2 (Version None)
Quarter: 2012Q3

REPORT INFORMATION
  Report Type: 
  Country: None (occurrence: None)
  Receive Date: 20120731
  Receipt Date: 20120724
  Transmission Date: 20120928
  Serious: Yes (Hospitalization)
  Sender: FDA-Public Use
  Company Number: PHHY2011CA43187

PATIENT

DRUGS (1)
  1. SANDOSTATIN LAR [Suspect]
     Indication: NEUROENDOCRINE CARCINOMA
     Dosage: 30 MG, EVERY 4 WEEKS
     Route: 030
     Dates: start: 20110509

REACTIONS (6)
  - SYNCOPE [None]
  - VOMITING [None]
  - BLOOD CHROMOGRANIN A INCREASED [None]
  - NAUSEA [None]
  - FATIGUE [None]
  - LETHARGY [None]
